FAERS Safety Report 8847888 (Version 1)
Quarter: 2012Q4

REPORT INFORMATION
  Report Type: Report from Study
  Country: DK (occurrence: DK)
  Receive Date: 20121018
  Receipt Date: 20121018
  Transmission Date: 20130627
  Serious: Yes (Life-Threatening)
  Sender: FDA-Public Use
  Company Number: DK-BAXTER-2012BAX019678

PATIENT
  Age: 70 Year
  Sex: Female
  Weight: 81 kg

DRUGS (7)
  1. SENDOXAN [Suspect]
     Indication: MALIGNANT LYMPHOID NEOPLASM
     Route: 042
     Dates: start: 20120417
  2. RITUXIMAB [Suspect]
     Indication: MALIGNANT LYMPHOID NEOPLASM
     Route: 042
     Dates: start: 20120417
  3. DOXORUBICIN [Suspect]
     Indication: MALIGNANT LYMPHOID NEOPLASM
     Route: 042
     Dates: start: 20120417
  4. PREDNISONE [Suspect]
     Indication: MALIGNANT LYMPHOID NEOPLASM
     Route: 048
     Dates: start: 20120417
  5. PREDNISONE [Suspect]
     Route: 048
     Dates: start: 20120420
  6. VINCRISTINE [Suspect]
     Indication: MALIGNANT LYMPHOID NEOPLASM
     Route: 042
     Dates: start: 20120417
  7. FILGRASTIM [Suspect]
     Indication: MALIGNANT LYMPHOID NEOPLASM
     Route: 058
     Dates: start: 20120418

REACTIONS (1)
  - Sepsis [Recovered/Resolved]
